FAERS Safety Report 8902001 (Version 1)
Quarter: 2012Q4

REPORT INFORMATION
  Report Type: 
  Country: US (occurrence: US)
  Receive Date: 20121112
  Receipt Date: 20121112
  Transmission Date: 20130627
  Serious: Yes (Other)
  Sender: FDA-Public Use
  Company Number: US-BAYER-2012-116543

PATIENT
  Age: 23 Year
  Sex: Female
  Weight: 56.69 kg

DRUGS (2)
  1. YASMIN [Suspect]
     Indication: ACNE
  2. MINOCYCLINE [Concomitant]
     Route: 048

REACTIONS (1)
  - Deep vein thrombosis [None]
